FAERS Safety Report 25046974 (Version 1)
Quarter: 2025Q1

REPORT INFORMATION
  Report Type: Spontaneous
  Country: ES (occurrence: ES)
  Receive Date: 20250306
  Receipt Date: 20250306
  Transmission Date: 20250409
  Serious: Yes (Life-Threatening, Hospitalization)
  Sender: PFIZER
  Company Number: None

PATIENT
  Age: 56 Year
  Sex: Female

DRUGS (6)
  1. ANIDULAFUNGIN [Suspect]
     Active Substance: ANIDULAFUNGIN
     Indication: Gastrointestinal infection
     Dosage: 100 MG, DAILY(EVERY 24 HOURS)
     Route: 042
     Dates: start: 20241107, end: 20241210
  2. PIPERACILLIN SODIUM\TAZOBACTAM SODIUM [Suspect]
     Active Substance: PIPERACILLIN SODIUM\TAZOBACTAM SODIUM
     Indication: Gastrointestinal infection
     Dosage: 12 G, DAILY (EVERY 24 HOURS)
     Route: 042
     Dates: start: 20241025, end: 20241209
  3. METAMIZOLE [Suspect]
     Active Substance: METAMIZOLE
     Indication: Pain
     Dosage: 6 G, DAILY (EVERY 24 HOURS)
     Route: 042
     Dates: start: 20241107, end: 20241211
  4. DEXKETOPROFEN [Suspect]
     Active Substance: DEXKETOPROFEN
     Indication: Pain
     Dosage: 150 MG, DAILY (EVERY 24 HOURS)
     Route: 042
     Dates: start: 20241025, end: 20241211
  5. LEVOTHYROXINE SODIUM [Suspect]
     Active Substance: LEVOTHYROXINE SODIUM
     Indication: Hypothyroidism
     Dosage: 50 UG, DAILY (EVERY 24 HOURS)
     Route: 048
     Dates: start: 20241025, end: 20241101
  6. SOMATOSTATIN [Suspect]
     Active Substance: SOMATOSTATIN
     Indication: Fistula
     Dosage: 6 MG, DAILY (EVERY 24 HOURS)
     Route: 042
     Dates: start: 20241107, end: 20241211

REACTIONS (1)
  - Drug reaction with eosinophilia and systemic symptoms [Recovered/Resolved]

NARRATIVE: CASE EVENT DATE: 20241208
